FAERS Safety Report 4561614-1 (Version None)
Quarter: 2005Q1

REPORT INFORMATION
  Report Type: 
  Country: None (occurrence: None)
  Receive Date: 20050126
  Receipt Date: 20050121
  Transmission Date: 20050727
  Serious: Yes (Other)
  Sender: FDA-Public Use
  Company Number: 003895

PATIENT
  Age: 31 Year
  Sex: Female

DRUGS (4)
  1. PAXIL [Suspect]
     Indication: DRUG USE FOR UNKNOWN INDICATION
     Route: 048
     Dates: start: 20030501
  2. DEXTROAMPHETAMINE SULFATE [Suspect]
     Indication: NARCOLEPSY
     Dosage: 15MG TWICE PER DAY
     Route: 048
     Dates: start: 20030501, end: 20041201
  3. THYROID TAB [Concomitant]
  4. ORAL CONTRACEPTIVE [Concomitant]
     Route: 048

REACTIONS (5)
  - ABDOMINAL DISTENSION [None]
  - FEELING ABNORMAL [None]
  - HYPOAESTHESIA [None]
  - SOMNOLENCE [None]
  - WEIGHT DECREASED [None]
